FAERS Safety Report 12999686 (Version 1)
Quarter: 2016Q4

REPORT INFORMATION
  Report Type: Spontaneous
  Country: SE (occurrence: SE)
  Receive Date: 20161205
  Receipt Date: 20161205
  Transmission Date: 20170207
  Serious: Yes (Hospitalization)
  Sender: FDA-Public Use
  Company Number: SE-TEVA-714932ACC

PATIENT
  Age: 69 Year
  Sex: Female

DRUGS (7)
  1. OXASCAND [Concomitant]
     Active Substance: OXAZEPAM
  2. OLANZAPIN ACTAVIS 10 MG FILMDRAGERAD TABLET [Suspect]
     Active Substance: OLANZAPINE
     Dosage: 10 MILLIGRAM DAILY;
     Dates: end: 201610
  3. ZOPICLONE [Concomitant]
     Active Substance: ZOPICLONE
  4. PROPAVAN [Concomitant]
     Active Substance: PROPIOMAZINE
  5. NITROFURANTOIN. [Concomitant]
     Active Substance: NITROFURANTOIN
     Indication: URINARY TRACT INFECTION
     Dates: start: 201610, end: 201610
  6. ABILIFY [Concomitant]
     Active Substance: ARIPIPRAZOLE
  7. ARIPIPRAZOLE (ANHYDROUS) [Suspect]
     Active Substance: ARIPIPRAZOLE
     Dates: end: 201610

REACTIONS (11)
  - Atrioventricular block first degree [None]
  - Urosepsis [None]
  - Seizure [Recovered/Resolved]
  - Cardiac arrest [None]
  - Anaemia [Not Recovered/Not Resolved]
  - Thrombocytopenia [Not Recovered/Not Resolved]
  - General physical health deterioration [Not Recovered/Not Resolved]
  - Urinary tract infection [None]
  - Dysphagia [None]
  - Arrhythmia [Recovered/Resolved]
  - Generalised tonic-clonic seizure [None]

NARRATIVE: CASE EVENT DATE: 201610
